FAERS Safety Report 9841924 (Version 1)
Quarter: 2014Q1

REPORT INFORMATION
  Report Type: Spontaneous
  Country: GB (occurrence: GB)
  Receive Date: 20140124
  Receipt Date: 20140124
  Transmission Date: 20141002
  Serious: Yes (Hospitalization)
  Sender: FDA-Public Use
  Company Number: GB-ACTAVIS-2014-00529

PATIENT
  Age: 73 Year
  Sex: Female

DRUGS (7)
  1. ACETYLSALICYLIC ACID [Suspect]
     Indication: ANGINA PECTORIS
     Dosage: 75 MG, UNK
     Route: 048
     Dates: end: 20131219
  2. PREDNISOLONE (UNKNOWN) [Suspect]
     Indication: LOWER RESPIRATORY TRACT INFECTION
     Dosage: 25 MG, DAILY
     Route: 048
     Dates: start: 20131212, end: 20131219
  3. PREDNISOLONE (UNKNOWN) [Suspect]
     Dosage: 50 MG, DAILY
     Route: 048
  4. DOXYCYCLINE HYCLATE (UNKNOWN) [Suspect]
     Indication: LOWER RESPIRATORY TRACT INFECTION
     Dosage: 100 MG, DAILY
     Route: 048
     Dates: start: 20131212, end: 20131219
  5. BENDROFLUMETHIAZIDE [Concomitant]
     Indication: HYPERTENSION
     Dosage: 2.5 MG, QAM
     Route: 048
     Dates: end: 20131219
  6. SERETIDE [Concomitant]
     Indication: CHRONIC OBSTRUCTIVE PULMONARY DISEASE
     Dosage: 2 DF, BID
     Route: 055
  7. SIMVASTATIN [Concomitant]
     Indication: ANGINA PECTORIS
     Dosage: 40 MG, QPM
     Route: 048

REACTIONS (1)
  - Gastrointestinal haemorrhage [Recovering/Resolving]
